FAERS Safety Report 23158814 (Version 3)
Quarter: 2025Q1

REPORT INFORMATION
  Report Type: Report from Study
  Country: BR (occurrence: BR)
  Receive Date: 20231108
  Receipt Date: 20250127
  Transmission Date: 20250408
  Serious: Yes (Other)
  Sender: TAKEDA
  Company Number: BR-TAKEDA-2023TUS106087

PATIENT
  Age: 14 Year
  Sex: Male
  Weight: 68.5 kg

DRUGS (3)
  1. HUMAN IMMUNOGLOBULIN G\HYALURONIDASE RECOMBINANT HUMAN [Suspect]
     Active Substance: HUMAN IMMUNOGLOBULIN G\HYALURONIDASE (HUMAN RECOMBINANT)
     Indication: Primary immunodeficiency syndrome
     Dosage: 20 GRAM, Q3WEEKS
     Dates: start: 202210
  2. HUMAN IMMUNOGLOBULIN G\HYALURONIDASE RECOMBINANT HUMAN [Suspect]
     Active Substance: HUMAN IMMUNOGLOBULIN G\HYALURONIDASE (HUMAN RECOMBINANT)
     Dosage: 35 GRAM, Q3WEEKS
     Dates: start: 202210
  3. HUMAN IMMUNOGLOBULIN G [Suspect]
     Active Substance: HUMAN IMMUNOGLOBULIN G
     Indication: Primary immunodeficiency syndrome

REACTIONS (16)
  - Pneumonia [Unknown]
  - Sinusitis [Unknown]
  - Ear infection [Unknown]
  - Mastoiditis [Unknown]
  - Onychomycosis [Unknown]
  - Mucosal inflammation [Unknown]
  - Enterovirus infection [Unknown]
  - Varicella [Unknown]
  - Fungal infection [Unknown]
  - Rhinitis allergic [Unknown]
  - Infection [Not Recovered/Not Resolved]
  - Insurance issue [Recovered/Resolved]
  - Product availability issue [Unknown]
  - Product use issue [Unknown]
  - Inappropriate schedule of product administration [Recovered/Resolved]
  - Asthma [Unknown]

NARRATIVE: CASE EVENT DATE: 20231001
